FAERS Safety Report 10017551 (Version 1)
Quarter: 2014Q1

REPORT INFORMATION
  Report Type: Report from Study
  Country: CA (occurrence: CA)
  Receive Date: 20140318
  Receipt Date: 20140318
  Transmission Date: 20141002
  Serious: Yes (Death, Hospitalization)
  Sender: FDA-Public Use
  Company Number: CA-JNJFOC-20140308095

PATIENT
  Age: 41 Year
  Sex: Female

DRUGS (4)
  1. TYLENOL EXTRA STRENGTH [Suspect]
     Route: 048
  2. TYLENOL EXTRA STRENGTH [Suspect]
     Indication: PRODUCT USED FOR UNKNOWN INDICATION
     Dosage: 100 EVERY 2-3 DAYS X 2 WEEKS
     Route: 048
     Dates: start: 19841022, end: 19841105
  3. MORPHINE [Concomitant]
     Indication: PRODUCT USED FOR UNKNOWN INDICATION
     Route: 048
  4. ELAVIL [Concomitant]
     Indication: PRODUCT USED FOR UNKNOWN INDICATION
     Route: 048

REACTIONS (6)
  - Acute hepatic failure [Fatal]
  - Hepatic necrosis [Fatal]
  - Pancreatitis [Fatal]
  - Brain oedema [Fatal]
  - Crohn^s disease [Fatal]
  - Overdose [Fatal]
